FAERS Safety Report 8154172-6 (Version None)
Quarter: 2012Q1

REPORT INFORMATION
  Report Type: 
  Country: None (occurrence: None)
  Receive Date: 20120221
  Receipt Date: 20120214
  Transmission Date: 20120608
  Serious: Yes (Other)
  Sender: FDA-Public Use
  Company Number: US-PFIZER INC-2012012725

PATIENT
  Sex: Male

DRUGS (2)
  1. DILANTIN-125 [Suspect]
     Dosage: 100 MG, 3X/DAY
  2. DILANTIN-125 [Suspect]
     Dosage: 30 MG

REACTIONS (6)
  - EAR DISORDER [None]
  - INJURY [None]
  - HEARING IMPAIRED [None]
  - CONVULSION [None]
  - EYE OPERATION [None]
  - ROAD TRAFFIC ACCIDENT [None]
